FAERS Safety Report 9980762 (Version 1)
Quarter: 2014Q1

REPORT INFORMATION
  Report Type: Spontaneous
  Country: US (occurrence: US)
  Receive Date: 20140307
  Receipt Date: 20140307
  Transmission Date: 20141002
  Serious: No
  Sender: FDA-Public Use
  Company Number: US-JNJFOC-20140205210

PATIENT
  Sex: Female

DRUGS (1)
  1. INVEGA SUSTENNA [Suspect]
     Indication: PRODUCT USED FOR UNKNOWN INDICATION
     Route: 030
     Dates: start: 201311

REACTIONS (3)
  - Amenorrhoea [Not Recovered/Not Resolved]
  - Blood prolactin abnormal [Unknown]
  - Galactorrhoea [Not Recovered/Not Resolved]
